FAERS Safety Report 10055543 (Version 1)
Quarter: 2014Q2

REPORT INFORMATION
  Report Type: Spontaneous
  Country: US (occurrence: None)
  Receive Date: 20140402
  Receipt Date: 20140402
  Transmission Date: 20141212
  Serious: Yes (Life-Threatening, Disabling)
  Sender: FDA-Public Use
  Company Number: None

PATIENT
  Age: 44 Year
  Sex: Male
  Weight: 90 kg

DRUGS (2)
  1. THYMOGLOBULIN [Suspect]
     Indication: RENAL TRANSPLANT
     Route: 042
     Dates: start: 20140305, end: 20140307
  2. THYMOGLOBULIN [Suspect]
     Indication: IMMUNOSUPPRESSANT DRUG THERAPY
     Route: 042
     Dates: start: 20140305, end: 20140307

REACTIONS (5)
  - Procedural hypotension [None]
  - Complications of transplanted kidney [None]
  - Renal ischaemia [None]
  - Arterial occlusive disease [None]
  - Removal of renal transplant [None]
